FAERS Safety Report 19776543 (Version 3)
Quarter: 2021Q3

REPORT INFORMATION
  Report Type: Spontaneous
  Country: NL (occurrence: NL)
  Receive Date: 20210901
  Receipt Date: 20210917
  Transmission Date: 20211014
  Serious: Yes (Hospitalization, Other)
  Sender: FDA-Public Use
  Company Number: NL-PFIZER INC-202101005604

PATIENT
  Age: 65 Year
  Sex: Male

DRUGS (3)
  1. FLUCONAZOLE. [Suspect]
     Active Substance: FLUCONAZOLE
     Indication: OROPHARYNGEAL CANDIDIASIS
     Dosage: UNK
     Route: 065
  2. ESOMEPRAZOLE SODIUM. [Interacting]
     Active Substance: ESOMEPRAZOLE SODIUM
     Dosage: 40 MG, DAILY
     Route: 065
  3. RIVAROXABAN [Concomitant]
     Active Substance: RIVAROXABAN
     Dosage: UNK
     Route: 065

REACTIONS (5)
  - Hypocalcaemia [Unknown]
  - Hypokalaemia [Unknown]
  - Drug interaction [Unknown]
  - Drug level increased [Unknown]
  - Hypomagnesaemia [Unknown]
